FAERS Safety Report 6924341-9 (Version None)
Quarter: 2010Q3

REPORT INFORMATION
  Report Type: 
  Country: None (occurrence: None)
  Receive Date: 20100811
  Receipt Date: 20100811
  Transmission Date: 20110219
  Serious: Yes (Other)
  Sender: FDA-Public Use
  Company Number: None

PATIENT
  Age: 29 Year
  Sex: Male

DRUGS (2)
  1. MUCINEX D [Suspect]
     Indication: NASOPHARYNGITIS
  2. METHIMAZOLE [Concomitant]

REACTIONS (1)
  - RASH [None]
